FAERS Safety Report 13977267 (Version 1)
Quarter: 2017Q3

REPORT INFORMATION
  Report Type: Spontaneous
  Country: US (occurrence: US)
  Receive Date: 20170915
  Receipt Date: 20170915
  Transmission Date: 20171128
  Serious: No
  Sender: FDA-Public Use
  Company Number: US-ROCHE-714360

PATIENT

DRUGS (1)
  1. HERCEPTIN [Suspect]
     Active Substance: TRASTUZUMAB
     Indication: PRODUCT USED FOR UNKNOWN INDICATION
     Dosage: DOSE AND FREQUENCY: NOT PROVIDED, OUT FROM TRASTUZUMAB THERAPY.
     Route: 065

REACTIONS (2)
  - Skin disorder [Not Recovered/Not Resolved]
  - Onychoclasis [Unknown]
